APPROVED DRUG PRODUCT: TETRAMED
Active Ingredient: TETRACYCLINE HYDROCHLORIDE
Strength: 125MG/5ML
Dosage Form/Route: SUSPENSION;ORAL
Application: A061468 | Product #001
Applicant: IVAX PHARMACEUTICALS INC SUB TEVA PHARMACEUTICALS USA
Approved: Approved Prior to Jan 1, 1982 | RLD: No | RS: No | Type: DISCN